FAERS Safety Report 7051448-0 (Version None)
Quarter: 2010Q4

REPORT INFORMATION
  Report Type: 
  Country: None (occurrence: None)
  Receive Date: 20101019
  Receipt Date: 20101011
  Transmission Date: 20110411
  Serious: Yes (Death, Hospitalization)
  Sender: FDA-Public Use
  Company Number: A0882388A

PATIENT
  Age: 51 Year
  Sex: Female

DRUGS (1)
  1. PROMACTA [Suspect]
     Dosage: 25MG PER DAY
     Dates: start: 20090501, end: 20100505

REACTIONS (3)
  - ADVERSE EVENT [None]
  - DEATH [None]
  - HOSPICE CARE [None]
